FAERS Safety Report 10110452 (Version 3)
Quarter: 2014Q2

REPORT INFORMATION
  Report Type: Spontaneous
  Country: JP (occurrence: JP)
  Receive Date: 20140425
  Receipt Date: 20140515
  Transmission Date: 20141212
  Serious: Yes (Death)
  Sender: FDA-Public Use
  Company Number: PHHY2014JP050102

PATIENT
  Age: 98 Year
  Sex: Male

DRUGS (1)
  1. EXJADE [Suspect]
     Indication: CHRONIC LYMPHOCYTIC LEUKAEMIA
     Dosage: 250 MG, DAILY
     Route: 048
     Dates: end: 201403

REACTIONS (2)
  - Cerebral infarction [Fatal]
  - Marasmus [Unknown]
